FAERS Safety Report 20723647 (Version 1)
Quarter: 2022Q2

REPORT INFORMATION
  Report Type: Report from Study
  Country: US (occurrence: US)
  Receive Date: 20220419
  Receipt Date: 20220419
  Transmission Date: 20220720
  Serious: No
  Sender: FDA-Public Use
  Company Number: US-NOVARTISTESTPH-NVSC2022US089801

PATIENT
  Sex: Female

DRUGS (2)
  1. PROMACTA [Suspect]
     Active Substance: ELTROMBOPAG OLAMINE
     Indication: Immune thrombocytopenia
     Dosage: 50 MG, QD
     Route: 048
  2. PROMACTA [Suspect]
     Active Substance: ELTROMBOPAG OLAMINE
     Dosage: 25 MG, QD
     Route: 048

REACTIONS (10)
  - Oral pain [Recovering/Resolving]
  - Mouth haemorrhage [Unknown]
  - Oral discomfort [Unknown]
  - Gingival bleeding [Unknown]
  - Bone pain [Recovering/Resolving]
  - Epistaxis [Recovered/Resolved]
  - Headache [Unknown]
  - Nausea [Recovering/Resolving]
  - Diarrhoea [Unknown]
  - Myalgia [Recovering/Resolving]
